FAERS Safety Report 9456265 (Version 2)
Quarter: 2013Q3

REPORT INFORMATION
  Report Type: Spontaneous
  Country: GB (occurrence: GB)
  Receive Date: 20130813
  Receipt Date: 20130822
  Transmission Date: 20140515
  Serious: Yes (Other)
  Sender: FDA-Public Use
  Company Number: GB-B.I. PHARMACEUTICALS,INC./RIDGEFIELD-2013-UK-01613UK

PATIENT
  Age: 76 Year
  Sex: Male
  Weight: 99 kg

DRUGS (10)
  1. TRAJENTA [Suspect]
     Indication: TYPE 2 DIABETES MELLITUS
     Dosage: 5 MG
     Route: 048
     Dates: start: 20130426, end: 20130510
  2. ALLOPURINOL [Concomitant]
     Dosage: 100 MG
     Route: 048
     Dates: start: 20090409
  3. ATORVASTATIN [Concomitant]
     Dosage: 40 MG
     Route: 048
     Dates: start: 20110714
  4. METHYLDOPA [Concomitant]
     Dosage: 125 MG
     Route: 048
     Dates: start: 20130805
  5. LANSOPRAZOLE [Concomitant]
     Dosage: 15 MG
     Route: 048
     Dates: start: 19980804
  6. METHYLDOPA [Concomitant]
     Dosage: 500 MG
     Route: 048
     Dates: start: 20060405
  7. ATENOLOL [Concomitant]
     Dosage: 50 MG
     Route: 048
     Dates: start: 20111116
  8. EZETIMIBE [Concomitant]
     Dosage: 10 MG
     Route: 048
     Dates: start: 20061204
  9. BUMETANIDE [Concomitant]
     Dosage: 1 MG
     Route: 048
     Dates: start: 20090611
  10. HYDRALAZINE [Concomitant]
     Dosage: 50 MG
     Dates: start: 20030820

REACTIONS (3)
  - Anaphylactoid reaction [Unknown]
  - Dyspnoea [Recovered/Resolved]
  - Rash pruritic [Recovered/Resolved]
